FAERS Safety Report 15089595 (Version 1)
Quarter: 2018Q2

REPORT INFORMATION
  Report Type: Spontaneous
  Country: JP (occurrence: JP)
  Receive Date: 20180629
  Receipt Date: 20180629
  Transmission Date: 20180711
  Serious: Yes (Other)
  Sender: FDA-Public Use
  Company Number: JP-009507513-1806JPN012029

PATIENT
  Age: 67 Year

DRUGS (2)
  1. SEIBULE [Concomitant]
     Active Substance: MIGLITOL
     Dosage: UNK
  2. GLACTIV [Suspect]
     Active Substance: SITAGLIPTIN
     Indication: TYPE 2 DIABETES MELLITUS
     Dosage: 25 MG ONCE A DAY (STRENGHT REPORTED AS 12.5 MG, 25 MG, 50MG, 100MG
     Route: 048
     Dates: start: 2010, end: 201804

REACTIONS (1)
  - Polymyalgia rheumatica [Not Recovered/Not Resolved]

NARRATIVE: CASE EVENT DATE: 201803
